FAERS Safety Report 9954713 (Version 1)
Quarter: 2014Q1

REPORT INFORMATION
  Report Type: Report from Study
  Country: US (occurrence: US)
  Receive Date: 20140304
  Receipt Date: 20140304
  Transmission Date: 20141002
  Serious: No
  Sender: FDA-Public Use
  Company Number: US-ABBVIE-13P-163-1083660-00

PATIENT
  Age: 58 Year
  Sex: Female

DRUGS (10)
  1. HUMIRA [Suspect]
     Indication: PSORIATIC ARTHROPATHY
     Dates: start: 20130426
  2. METHOTREXATE [Concomitant]
     Indication: PSORIATIC ARTHROPATHY
  3. PREDNISONE [Concomitant]
     Indication: PSORIATIC ARTHROPATHY
  4. FOLIC ACID [Concomitant]
     Indication: VITAMIN SUPPLEMENTATION
  5. LEVOTHYROXINE [Concomitant]
     Indication: THYROID DISORDER
  6. VALSART [Concomitant]
     Indication: BLOOD PRESSURE
     Dosage: 80-12
  7. TRAMADOL [Concomitant]
     Indication: PAIN
  8. METHOCARBAMOL [Concomitant]
     Indication: MUSCLE SPASMS
  9. ALPRAZOLAM [Concomitant]
     Indication: SLEEP DISORDER
  10. NSAIDS [Concomitant]
     Indication: PRODUCT USED FOR UNKNOWN INDICATION

REACTIONS (8)
  - Skin tightness [Recovering/Resolving]
  - Arthralgia [Recovering/Resolving]
  - Back pain [Recovering/Resolving]
  - Myalgia [Recovering/Resolving]
  - Rash [Recovering/Resolving]
  - Face oedema [Recovering/Resolving]
  - Joint swelling [Recovering/Resolving]
  - Hot flush [Recovering/Resolving]
